FAERS Safety Report 8024340-2 (Version None)
Quarter: 2012Q1

REPORT INFORMATION
  Report Type: 
  Country: None (occurrence: None)
  Receive Date: 20120105
  Receipt Date: 20111227
  Transmission Date: 20120608
  Serious: Yes (Hospitalization)
  Sender: FDA-Public Use
  Company Number: PHEH2011US012816

PATIENT
  Sex: Female

DRUGS (7)
  1. DIOVAN [Suspect]
     Dosage: 320 MG, DAILY
     Route: 048
  2. XANAX [Suspect]
     Dosage: 0.5 MG, Q8H
     Route: 048
  3. ROCEPHIN [Suspect]
     Dosage: 1 G, Q12H
  4. MOBIC [Suspect]
     Dosage: 15 MG, DAILY
     Route: 048
  5. LYRICA [Suspect]
     Dosage: 75 MG, BID
     Route: 048
  6. ZYLOPRIM [Suspect]
     Dosage: 300 MG, DAILY
     Route: 048
  7. LASIX [Suspect]
     Dosage: 40 MG, DAILY
     Route: 048

REACTIONS (13)
  - BLOOD SODIUM DECREASED [None]
  - BLOOD GLUCOSE INCREASED [None]
  - RED BLOOD CELLS URINE POSITIVE [None]
  - HAEMATURIA [None]
  - HAEMOGLOBIN INCREASED [None]
  - PYREXIA [None]
  - CONFUSIONAL STATE [None]
  - PROTEIN TOTAL INCREASED [None]
  - BLOOD URINE PRESENT [None]
  - BLOOD PRESSURE SYSTOLIC INCREASED [None]
  - HEADACHE [None]
  - MONOCYTE COUNT INCREASED [None]
  - LYMPHOCYTE COUNT INCREASED [None]
